FAERS Safety Report 6711905-0 (Version None)
Quarter: 2010Q2

REPORT INFORMATION
  Report Type: 
  Country: None (occurrence: None)
  Receive Date: 20100505
  Receipt Date: 20100503
  Transmission Date: 20101027
  Serious: Yes (Other)
  Sender: FDA-Public Use
  Company Number: NL-MERCK-1005NLD00001

PATIENT
  Age: 53 Year
  Sex: Female

DRUGS (2)
  1. COSOPT [Suspect]
     Indication: OCULAR HYPERTENSION
     Route: 047
     Dates: start: 20100216, end: 20100407
  2. [THERAPY UNSPECIFIED] [Concomitant]
     Route: 048
     Dates: start: 20060101

REACTIONS (1)
  - RETINAL OEDEMA [None]
